FAERS Safety Report 10308556 (Version 1)
Quarter: 2014Q3

REPORT INFORMATION
  Report Type: Spontaneous
  Country: US (occurrence: US)
  Receive Date: 20140716
  Receipt Date: 20140716
  Transmission Date: 20150326
  Serious: Yes (Hospitalization)
  Sender: FDA-Public Use
  Company Number: US-GLAXOSMITHKLINE-A1080549A

PATIENT
  Age: 52 Year
  Sex: Female

DRUGS (15)
  1. VENTOLIN [Suspect]
     Active Substance: ALBUTEROL SULFATE
     Indication: ASTHMA
     Route: 065
     Dates: start: 2009
  2. ADVAIR HFA [Suspect]
     Active Substance: FLUTICASONE PROPIONATE\SALMETEROL XINAFOATE
     Indication: ASTHMA
     Dosage: 1PUFF TWICE PER DAY
     Route: 055
     Dates: start: 2011
  3. FERROUS SULFATE [Concomitant]
     Active Substance: FERROUS SULFATE\FERROUS SULFATE, DRIED
  4. ISOSORBIDE MONONITRATE. [Concomitant]
     Active Substance: ISOSORBIDE MONONITRATE
  5. LASIX [Concomitant]
     Active Substance: FUROSEMIDE
  6. METOPROLOL [Concomitant]
     Active Substance: METOPROLOL
  7. OXYCODONE [Concomitant]
     Active Substance: OXYCODONE
  8. POLYETHYLENE [Concomitant]
     Active Substance: HIGH DENSITY POLYETHYLENE
  9. BABY ASPIRIN [Concomitant]
     Active Substance: ASPIRIN
  10. FOLIC ACID. [Concomitant]
     Active Substance: FOLIC ACID
  11. METFORMIN [Concomitant]
     Active Substance: METFORMIN HYDROCHLORIDE
  12. ROSUVASTATIN [Concomitant]
     Active Substance: ROSUVASTATIN
  13. GABAPENTIN. [Concomitant]
     Active Substance: GABAPENTIN
  14. PREVACID [Concomitant]
     Active Substance: LANSOPRAZOLE
  15. LISINOPRIL. [Concomitant]
     Active Substance: LISINOPRIL

REACTIONS (21)
  - Pulmonary thrombosis [Unknown]
  - Drug ineffective [Unknown]
  - Transfusion [Unknown]
  - Dizziness [Unknown]
  - Uterine dilation and curettage [Unknown]
  - Pericardial effusion [Unknown]
  - Hypoaesthesia [Unknown]
  - Pain [Unknown]
  - Asthma [Not Recovered/Not Resolved]
  - Uterine leiomyoma embolisation [Unknown]
  - Fatigue [Unknown]
  - Intra-uterine contraceptive device insertion [Unknown]
  - Cardiac failure congestive [Unknown]
  - Dyspnoea [Not Recovered/Not Resolved]
  - Chest pain [Unknown]
  - Asthenia [Unknown]
  - Ill-defined disorder [Unknown]
  - Blood count abnormal [Unknown]
  - Fibroma [Unknown]
  - Haemorrhage [Unknown]
  - Presyncope [Unknown]

NARRATIVE: CASE EVENT DATE: 20140224
